FAERS Safety Report 6483939-5 (Version None)
Quarter: 2009Q4

REPORT INFORMATION
  Report Type: 
  Country: None (occurrence: None)
  Receive Date: 20091209
  Receipt Date: 20091204
  Transmission Date: 20100525
  Serious: Yes (Hospitalization, Disabling, Other)
  Sender: FDA-Public Use
  Company Number: US-MERCK-0906USA03785

PATIENT
  Age: 73 Year
  Sex: Female

DRUGS (9)
  1. FOSAMAX [Suspect]
     Indication: OSTEOPOROSIS
     Route: 048
     Dates: start: 19980805, end: 19980904
  2. FOSAMAX [Suspect]
     Route: 048
     Dates: start: 19961007, end: 19970509
  3. FOSAMAX [Suspect]
     Route: 048
     Dates: start: 19981028, end: 20000425
  4. FOSAMAX [Suspect]
     Route: 048
     Dates: start: 20001012, end: 20010418
  5. FOSAMAX [Suspect]
     Route: 048
     Dates: start: 20010723, end: 20010907
  6. FOSAMAX [Suspect]
     Route: 048
     Dates: start: 20030416, end: 20040912
  7. FOSAMAX [Suspect]
     Route: 048
     Dates: start: 20040928, end: 20061101
  8. PROTONIX [Concomitant]
     Indication: GASTRITIS
     Route: 065
     Dates: start: 19980101, end: 20030101
  9. [THERAPY UNSPECIFIED] [Concomitant]
     Indication: HYPERTENSION
     Route: 065
     Dates: start: 19950101, end: 20040101

REACTIONS (42)
  - ANAEMIA [None]
  - ANXIETY [None]
  - BLOOD PRESSURE INCREASED [None]
  - CALCINOSIS [None]
  - CATARACT [None]
  - CHRONIC SINUSITIS [None]
  - COGNITIVE DISORDER [None]
  - DELIRIUM [None]
  - DENTAL CARIES [None]
  - DENTAL FISTULA [None]
  - DEPRESSION [None]
  - DRY SKIN [None]
  - EAR PAIN [None]
  - EXOSTOSIS [None]
  - FISTULA DISCHARGE [None]
  - GALLBLADDER DISORDER [None]
  - GASTRITIS [None]
  - GASTROOESOPHAGEAL REFLUX DISEASE [None]
  - HYPERTENSION [None]
  - HYPOTONY OF EYE [None]
  - IMPAIRED HEALING [None]
  - IRRITABILITY [None]
  - MYALGIA [None]
  - MYELODYSPLASTIC SYNDROME [None]
  - NEUTROPENIA [None]
  - ORAL INFECTION [None]
  - OROANTRAL FISTULA [None]
  - OSTEOARTHRITIS [None]
  - OSTEOMYELITIS [None]
  - OSTEONECROSIS [None]
  - PAIN IN JAW [None]
  - PELVIC FRACTURE [None]
  - PYREXIA [None]
  - RENAL FAILURE ACUTE [None]
  - SCIATICA [None]
  - SINUS TACHYCARDIA [None]
  - SKIN LESION [None]
  - STOMATITIS [None]
  - THROMBOTIC THROMBOCYTOPENIC PURPURA [None]
  - UPPER LIMB FRACTURE [None]
  - UPPER RESPIRATORY TRACT INFECTION [None]
  - WEIGHT INCREASED [None]
